FAERS Safety Report 5143070-8 (Version None)
Quarter: 2006Q4

REPORT INFORMATION
  Report Type: 
  Country: None (occurrence: None)
  Receive Date: 20061101
  Receipt Date: 20061101
  Transmission Date: 20070319
  Serious: Yes (Death, Congenital Anomaly, Other)
  Sender: FDA-Public Use
  Company Number: None

PATIENT
  Age: 6 Day
  Sex: Female
  Weight: 2.268 kg

DRUGS (1)
  1. ALPHA HYDROXYPROGESTERONE [Suspect]
     Indication: PREMATURE BABY
     Dosage: 250 MG WEEKLY IM
     Route: 030
     Dates: start: 20051230, end: 20060414

REACTIONS (2)
  - DRUG EXPOSURE DURING PREGNANCY [None]
  - HEART DISEASE CONGENITAL [None]
